FAERS Safety Report 9062962 (Version 1)
Quarter: 2013Q1

REPORT INFORMATION
  Report Type: Spontaneous
  Country: None (occurrence: US)
  Receive Date: 20130129
  Receipt Date: 20130129
  Transmission Date: 20140127
  Serious: No
  Sender: FDA-Public Use
  Company Number: US-ABBOTT-12P-163-0948128-00

PATIENT
  Age: 54 None
  Sex: Female

DRUGS (2)
  1. HUMIRA 40 MG/ 0.8 ML PRE-FILLED SYRINGE [Suspect]
     Indication: PRODUCT USED FOR UNKNOWN INDICATION
  2. TERSYSOM FOAM [Concomitant]
     Indication: FUNGAL INFECTION
     Dates: start: 200902

REACTIONS (9)
  - Rash [Recovered/Resolved]
  - Rash [Recovered/Resolved]
  - Rash pustular [Recovered/Resolved]
  - Fungal infection [Recovered/Resolved]
  - Rash [Recovered/Resolved]
  - Rash pruritic [Recovered/Resolved]
  - Folliculitis [Recovered/Resolved]
  - Fungal infection [Recovered/Resolved]
  - Abscess fungal [Recovered/Resolved]
